FAERS Safety Report 21785788 (Version 2)
Quarter: 2023Q1

REPORT INFORMATION
  Report Type: Spontaneous
  Country: BE (occurrence: BE)
  Receive Date: 20221227
  Receipt Date: 20230110
  Transmission Date: 20230418
  Serious: Yes (Other)
  Sender: FDA-Public Use
  Company Number: BE-Accord-293372

PATIENT
  Sex: Female
  Weight: 45.4 kg

DRUGS (2)
  1. CARBOPLATIN [Suspect]
     Active Substance: CARBOPLATIN
     Indication: Ovarian cancer
     Dosage: DAILY DOSAGE: 382 MG/CURE?STRENGTH: 10 MG/ ML
     Route: 042
     Dates: start: 20221214, end: 20221214
  2. PANTOPRAZOLE [Concomitant]
     Active Substance: PANTOPRAZOLE
     Route: 048

REACTIONS (5)
  - Erythema [Recovered/Resolved]
  - Throat tightness [Recovered/Resolved]
  - Mouth swelling [Recovered/Resolved]
  - Chest discomfort [Recovered/Resolved]
  - Pruritus [Recovered/Resolved]

NARRATIVE: CASE EVENT DATE: 20221214
